FAERS Safety Report 8606577-4 (Version None)
Quarter: 2012Q3

REPORT INFORMATION
  Report Type: 
  Country: None (occurrence: None)
  Receive Date: 20120820
  Receipt Date: 20120809
  Transmission Date: 20120928
  Serious: Yes (Life-Threatening, Hospitalization)
  Sender: FDA-Public Use
  Company Number: US-CELGENEUS-163-21880-12062599

PATIENT
  Sex: Female

DRUGS (34)
  1. VELCADE [Concomitant]
     Dosage: 1 MILLIGRAM/SQ. METER
     Route: 041
  2. DILTIAZEM [Concomitant]
     Route: 065
  3. BUMEX [Concomitant]
     Route: 065
  4. PRILOSEC [Concomitant]
     Route: 065
  5. ACYCLOVIR [Concomitant]
     Dosage: 400 MILLIGRAM
     Route: 048
  6. ONDANSETRON [Concomitant]
     Dosage: 16 MILLIGRAM
     Route: 041
  7. GABAPENTIN [Concomitant]
     Dosage: 300 MILLIGRAM
     Route: 048
  8. SYNTHROID [Concomitant]
     Dosage: 25 MICROGRAM
     Route: 048
  9. PROMETRIUM [Concomitant]
     Dosage: 100 MILLIGRAM
     Route: 048
  10. ATIVAN [Concomitant]
     Route: 065
  11. ASPIRIN [Concomitant]
     Dosage: 324 MILLIGRAM
     Route: 065
  12. MAGNESIUM SULFATE [Concomitant]
     Dosage: 250 MILLIGRAM
     Route: 065
  13. REVLIMID [Suspect]
     Indication: MULTIPLE MYELOMA
     Dosage: 25 MILLIGRAM
     Route: 048
     Dates: start: 20120524, end: 20120615
  14. TORSEMIDE [Concomitant]
     Dosage: 20 MILLIGRAM
     Route: 048
  15. M.V.I. [Concomitant]
     Route: 065
  16. XANAX [Concomitant]
     Indication: ANXIETY
     Dosage: .25 MILLIGRAM
     Route: 048
  17. SODIUM CHLORIDE [Concomitant]
     Dosage: 500 MILLILITER
     Route: 041
  18. REVLIMID [Suspect]
     Dosage: 5 MILLIGRAM
     Route: 048
     Dates: start: 20120711
  19. HD [Concomitant]
     Dosage: 2 LITERS
     Route: 065
  20. HD [Concomitant]
     Dosage: 4 LITERS
     Route: 065
  21. NEURONTIN [Concomitant]
     Dosage: 100 MILLIGRAM
     Route: 048
  22. ESTRACE [Concomitant]
     Dosage: 1 MILLIGRAM
     Route: 048
  23. COMPAZINE [Concomitant]
     Indication: VOMITING
     Dosage: 10 MILLIGRAM
     Route: 048
  24. AMBIEN [Concomitant]
     Indication: SLEEP DISORDER
     Dosage: 5 MILLIGRAM
     Route: 048
  25. BIFIDOBACTERIUM INFANTIS [Concomitant]
     Dosage: 4 MILLIGRAM
     Route: 048
  26. LORATADINE [Concomitant]
     Dosage: 10 MILLIGRAM
     Route: 048
  27. OMEPRAZOLE [Concomitant]
     Dosage: 20 MILLIGRAM
     Route: 048
  28. DECADRON PHOSPHATE [Concomitant]
     Dosage: 20 MILLIGRAM
     Route: 065
  29. HORMONE REPLACEMENT THERAPY [Concomitant]
     Indication: POSTMENOPAUSE
     Route: 065
  30. RED BLOOD CELLS [Concomitant]
     Dosage: 1 UNIT
     Dates: start: 20120626, end: 20120626
  31. RED BLOOD CELLS [Concomitant]
     Dosage: 1 UNIT
     Dates: start: 20120628, end: 20120628
  32. VELCADE [Concomitant]
     Dosage: 1.3 MILLIGRAM/SQ. METER
     Route: 058
  33. VELCADE [Concomitant]
     Dosage: 1.67 MILLIGRAM
     Route: 041
  34. DOCUSATE [Concomitant]
     Dosage: 100 MILLIGRAM
     Route: 048

REACTIONS (3)
  - RENAL FAILURE [None]
  - ATRIAL FLUTTER [None]
  - CARDIAC FAILURE [None]
